FAERS Safety Report 13612591 (Version 1)
Quarter: 2017Q2

REPORT INFORMATION
  Report Type: Spontaneous
  Country: US (occurrence: US)
  Receive Date: 20170605
  Receipt Date: 20170605
  Transmission Date: 20170830
  Serious: Yes (Hospitalization)
  Sender: FDA-Public Use
  Company Number: US-FDC LIMITED-2017RIS00114

PATIENT
  Age: 74 Year
  Sex: Female

DRUGS (3)
  1. TIMOLOL MALEATE. [Suspect]
     Active Substance: TIMOLOL MALEATE
     Route: 061
  2. LATANOPROST. [Concomitant]
     Active Substance: LATANOPROST
     Route: 061
  3. IMMUNOSUPPRESSIVE MEDICATIONS [Concomitant]
     Route: 065

REACTIONS (3)
  - Chronotropic incompetence [Recovering/Resolving]
  - Bronchospasm [Recovering/Resolving]
  - Dyspnoea [Recovering/Resolving]
